FAERS Safety Report 5955627-2 (Version None)
Quarter: 2008Q4

REPORT INFORMATION
  Report Type: 
  Country: None (occurrence: None)
  Receive Date: 20081117
  Receipt Date: 20081112
  Transmission Date: 20090506
  Serious: Yes (Death, Other)
  Sender: FDA-Public Use
  Company Number: CH-RB-001828-08

PATIENT
  Age: 34 Year
  Sex: Male

DRUGS (7)
  1. SUBUTEX [Suspect]
     Indication: DRUG THERAPY
     Route: 060
     Dates: start: 20080508
  2. BENZODIAZEPINE [Suspect]
     Indication: DRUG USE FOR UNKNOWN INDICATION
     Dosage: DOSING INFORMATION UNKNOWN
     Route: 065
  3. REMERON [Concomitant]
     Indication: DRUG USE FOR UNKNOWN INDICATION
     Dosage: DOSING INFORMATION UNKNOWN
     Dates: start: 20080415
  4. INDERAL [Concomitant]
     Indication: DRUG USE FOR UNKNOWN INDICATION
     Dosage: DOSING INFORMATION UNKNOWN
     Route: 065
     Dates: start: 20080415
  5. ZURCAL [Concomitant]
     Indication: DRUG USE FOR UNKNOWN INDICATION
     Dosage: DOSING INFORMATION UNKNOWN
     Route: 065
     Dates: start: 20080415
  6. METHADONE HCL [Suspect]
     Indication: DRUG USE FOR UNKNOWN INDICATION
     Dosage: DOSING INFORMATION UNKNOWN
  7. SEROQUEL [Concomitant]
     Indication: DRUG USE FOR UNKNOWN INDICATION
     Dosage: DOSING INFORMATION UNKNOWN
     Route: 065
     Dates: start: 20080415

REACTIONS (3)
  - DRUG TOXICITY [None]
  - MYOCARDIAL INFARCTION [None]
  - SUBSTANCE ABUSE [None]
